FAERS Safety Report 6689944-8 (Version None)
Quarter: 2010Q2

REPORT INFORMATION
  Report Type: 
  Country: None (occurrence: None)
  Receive Date: 20100421
  Receipt Date: 20100413
  Transmission Date: 20101027
  Serious: Yes (Hospitalization, Other)
  Sender: FDA-Public Use
  Company Number: JP-PFIZER INC-2010047061

PATIENT
  Age: 64 Year
  Sex: Female

DRUGS (10)
  1. MEDROL [Suspect]
     Indication: RHEUMATOID ARTHRITIS
     Dosage: 5 MG, 1X/DAY
     Route: 048
     Dates: start: 20070529
  2. ABATACEPT [Suspect]
     Indication: RHEUMATOID ARTHRITIS
     Dosage: 500 MG, MONTHLY
     Route: 042
  3. GASMOTIN [Concomitant]
     Dosage: UNK
  4. KOLANTYL [Concomitant]
     Dosage: UNK
  5. ALFACALCIDOL [Concomitant]
     Dosage: UNK
  6. ASPARA-CA [Concomitant]
     Dosage: UNK
  7. OMEPRAZOLE [Concomitant]
     Dosage: UNK
  8. MOBIC [Concomitant]
     Dosage: UNK
     Dates: start: 20070719
  9. KETOPROFEN [Concomitant]
     Dosage: UNK
     Dates: start: 20070913
  10. HALCION [Concomitant]
     Dosage: UNK
     Dates: start: 20091105

REACTIONS (2)
  - ASTHENIA [None]
  - NASOPHARYNGITIS [None]
